FAERS Safety Report 4785381-1 (Version None)
Quarter: 2005Q4

REPORT INFORMATION
  Report Type: 
  Country: None (occurrence: None)
  Receive Date: 20051003
  Receipt Date: 20050921
  Transmission Date: 20060501
  Serious: Yes (Other)
  Sender: FDA-Public Use
  Company Number: US-BRISTOL-MYERS SQUIBB COMPANY-13118096

PATIENT

DRUGS (1)
  1. TAXOL [Suspect]

REACTIONS (1)
  - PERICARDITIS [None]
